FAERS Safety Report 13559072 (Version 1)
Quarter: 2017Q2

REPORT INFORMATION
  Report Type: Spontaneous
  Country: US (occurrence: US)
  Receive Date: 20170518
  Receipt Date: 20170518
  Transmission Date: 20170830
  Serious: No
  Sender: FDA-Public Use
  Company Number: US-ASTRAZENECA-2017SE52190

PATIENT
  Sex: Male
  Weight: 95.3 kg

DRUGS (3)
  1. CRESTOR [Suspect]
     Active Substance: ROSUVASTATIN CALCIUM
     Indication: BLOOD CHOLESTEROL
     Route: 048
     Dates: start: 2007, end: 2014
  2. SIMVASTATIN. [Concomitant]
     Active Substance: SIMVASTATIN
  3. CRESTOR [Suspect]
     Active Substance: ROSUVASTATIN CALCIUM
     Indication: BLOOD CHOLESTEROL
     Route: 048

REACTIONS (3)
  - Insurance issue [Unknown]
  - Drug dose omission [Unknown]
  - Blood cholesterol increased [Unknown]
